FAERS Safety Report 9391153 (Version 4)
Quarter: 2019Q4

REPORT INFORMATION
  Report Type: Spontaneous
  Country: FR (occurrence: FR)
  Receive Date: 20130709
  Receipt Date: 20191028
  Transmission Date: 20200122
  Serious: Yes (Other)
  Sender: FDA-Public Use
  Company Number: FR-JNJFOC-20130619607

PATIENT
  Age: 52 Year
  Sex: Female

DRUGS (1)
  1. INFLIXIMAB, RECOMBINANT [Suspect]
     Active Substance: INFLIXIMAB
     Indication: RHEUMATOID ARTHRITIS
     Dosage: 10 YEARS DURATION
     Route: 042

REACTIONS (4)
  - Myocardial infarction [Unknown]
  - Blood triglycerides increased [Recovering/Resolving]
  - Retinal artery thrombosis [Unknown]
  - Retinal vein thrombosis [Unknown]
